FAERS Safety Report 5197599-7 (Version None)
Quarter: 2007Q1

REPORT INFORMATION
  Report Type: 
  Country: None (occurrence: None)
  Receive Date: 20070103
  Receipt Date: 20070102
  Transmission Date: 20070707
  Serious: Yes (Hospitalization)
  Sender: FDA-Public Use
  Company Number: GB-BOEHRINGER INGELHEIM PHARMACEUTICALS, INC.-2006-UK-04724UK

PATIENT
  Sex: Female

DRUGS (4)
  1. DIXARIT [Suspect]
     Indication: RESTLESS LEGS SYNDROME
     Dosage: 100 MCG 3 TIMES PER DAY
     Route: 048
     Dates: start: 19950512, end: 20021202
  2. PROTHIADINE [Concomitant]
     Indication: DEPRESSION
     Dates: start: 19981001, end: 20051205
  3. LOFEPRAMINE [Concomitant]
     Indication: DEPRESSION
  4. FYBOGEL [Concomitant]
     Indication: DIVERTICULITIS

REACTIONS (6)
  - ABDOMINAL PAIN [None]
  - DEPRESSION [None]
  - DIVERTICULUM [None]
  - HYPERTENSION [None]
  - SOCIAL PHOBIA [None]
  - VOMITING PROJECTILE [None]
